FAERS Safety Report 10128774 (Version 2)
Quarter: 2014Q2

REPORT INFORMATION
  Report Type: Report from Study
  Country: US (occurrence: US)
  Receive Date: 20140428
  Receipt Date: 20140613
  Transmission Date: 20141212
  Serious: Yes (Other)
  Sender: FDA-Public Use
  Company Number: US-JNJFOC-20140416389

PATIENT
  Sex: Male
  Weight: 114.76 kg

DRUGS (6)
  1. REMICADE [Suspect]
     Indication: RHEUMATOID ARTHRITIS
     Route: 042
  2. REMICADE [Suspect]
     Indication: RHEUMATOID ARTHRITIS
     Route: 042
     Dates: start: 20140423
  3. LYRICA [Concomitant]
     Indication: NEUROPATHY PERIPHERAL
     Route: 065
  4. METHOTREXATE [Concomitant]
     Indication: RHEUMATOID ARTHRITIS
     Route: 065
  5. LORAZEPAM [Concomitant]
     Indication: TINNITUS
     Route: 065
  6. HYDROCODONE [Concomitant]
     Indication: PAIN
     Route: 065

REACTIONS (1)
  - Synovial cyst [Recovered/Resolved]
